FAERS Safety Report 7785690-8 (Version None)
Quarter: 2011Q3

REPORT INFORMATION
  Report Type: 
  Country: None (occurrence: None)
  Receive Date: 20110929
  Receipt Date: 20110926
  Transmission Date: 20111222
  Serious: Yes (Death)
  Sender: FDA-Public Use
  Company Number: IN-JNJFOC-20110910417

PATIENT
  Age: 90 Year
  Sex: Male

DRUGS (3)
  1. WARFARIN SODIUM [Concomitant]
     Indication: ANTICOAGULANT THERAPY
     Dates: start: 20110923
  2. XARELTO [Suspect]
     Indication: EMBOLISM VENOUS
     Route: 048
  3. HEPARIN [Concomitant]
     Indication: ANTICOAGULANT THERAPY

REACTIONS (2)
  - DEATH [None]
  - ECCHYMOSIS [None]
